FAERS Safety Report 7674048-8 (Version None)
Quarter: 2011Q3

REPORT INFORMATION
  Report Type: 
  Country: None (occurrence: None)
  Receive Date: 20110810
  Receipt Date: 20110718
  Transmission Date: 20111222
  Serious: Yes (Hospitalization, Other)
  Sender: FDA-Public Use
  Company Number: ES-UCBSA-038437

PATIENT
  Age: 54 Year
  Sex: Male

DRUGS (1)
  1. OMEPRAZOLE [Suspect]
     Indication: DUODENAL ULCER

REACTIONS (3)
  - HYPOCALCAEMIA [None]
  - HYPOPARATHYROIDISM [None]
  - HYPOMAGNESAEMIA [None]
